FAERS Safety Report 16960638 (Version 2)
Quarter: 2019Q4

REPORT INFORMATION
  Report Type: Spontaneous
  Country: US (occurrence: US)
  Receive Date: 20191025
  Receipt Date: 20191202
  Transmission Date: 20200122
  Serious: No
  Sender: FDA-Public Use
  Company Number: US-HORIZON-ACT-0280-2019

PATIENT
  Age: 5 Year
  Sex: Male

DRUGS (6)
  1. ACTIMMUNE [Suspect]
     Active Substance: INTERFERON GAMMA-1B
     Indication: CHRONIC GRANULOMATOUS DISEASE
     Dosage: 0.18 ML TIW
     Dates: start: 20170130
  2. IRON [Concomitant]
     Active Substance: IRON
  3. PREDNISOLONE. [Concomitant]
     Active Substance: PREDNISOLONE
  4. PENTASA [Concomitant]
     Active Substance: MESALAMINE
     Dosage: 250MG
  5. SPORANOX [Concomitant]
     Active Substance: ITRACONAZOLE
  6. BACTRIM [Concomitant]
     Active Substance: SULFAMETHOXAZOLE\TRIMETHOPRIM

REACTIONS (2)
  - Gastritis [Unknown]
  - Gastrointestinal disorder [Unknown]
